FAERS Safety Report 17734080 (Version 1)
Quarter: 2020Q2

REPORT INFORMATION
  Report Type: Spontaneous
  Country: US (occurrence: US)
  Receive Date: 20200501
  Receipt Date: 20200501
  Transmission Date: 20200714
  Serious: No
  Sender: FDA-Public Use
  Company Number: US-TEVA-2020-US-1229946

PATIENT
  Sex: Female

DRUGS (1)
  1. DULOXETINE. [Suspect]
     Active Substance: DULOXETINE
     Dosage: 20 MG
     Route: 065

REACTIONS (4)
  - Dizziness [Unknown]
  - Somnolence [Unknown]
  - Diarrhoea [Unknown]
  - Nausea [Unknown]
